FAERS Safety Report 8531454-7 (Version None)
Quarter: 2012Q3

REPORT INFORMATION
  Report Type: 
  Country: None (occurrence: None)
  Receive Date: 20120723
  Receipt Date: 20120716
  Transmission Date: 20120928
  Serious: Yes (Other)
  Sender: FDA-Public Use
  Company Number: US-ALEXION-A201201315

PATIENT
  Sex: Female
  Weight: 134.7 kg

DRUGS (5)
  1. SOLIRIS [Suspect]
     Indication: PAROXYSMAL NOCTURNAL HAEMOGLOBINURIA
     Dosage: 600 MG, QW
     Route: 042
     Dates: start: 20110408, end: 20110429
  2. PROMETHAZINE [Concomitant]
     Indication: NAUSEA
     Dosage: 25 MG, Q 6 HRS PRN
     Route: 048
  3. FOLIC ACID [Concomitant]
     Dosage: 1 MG, QD
     Route: 048
  4. FIORICET [Concomitant]
     Indication: MIGRAINE
     Dosage: 50/325-40, PRN
     Route: 048
  5. SOLIRIS [Suspect]
     Dosage: 900 MG, Q2W
     Route: 042
     Dates: start: 20110506

REACTIONS (2)
  - ARNOLD-CHIARI MALFORMATION [None]
  - CHROMATURIA [None]
